FAERS Safety Report 7448501-6 (Version None)
Quarter: 2011Q2

REPORT INFORMATION
  Report Type: 
  Country: None (occurrence: None)
  Receive Date: 20110429
  Receipt Date: 20100621
  Transmission Date: 20111010
  Serious: No
  Sender: FDA-Public Use
  Company Number: US-ASTRAZENECA-2010SE28963

PATIENT
  Age: 90 Year
  Sex: Female

DRUGS (4)
  1. CALCIUM SUPPLEMENTS [Concomitant]
  2. SIMVASTATIN [Concomitant]
  3. NEXIUM [Suspect]
     Indication: GASTROOESOPHAGEAL REFLUX DISEASE
     Route: 048
     Dates: start: 20091201
  4. THYROID MEDICATION [Concomitant]

REACTIONS (8)
  - DYSPHONIA [None]
  - ABDOMINAL DISTENSION [None]
  - DRUG INEFFECTIVE [None]
  - STRESS FRACTURE [None]
  - PAIN IN EXTREMITY [None]
  - THROAT IRRITATION [None]
  - GASTROOESOPHAGEAL REFLUX DISEASE [None]
  - ERUCTATION [None]
